FAERS Safety Report 9528520 (Version 2)
Quarter: 2013Q3

REPORT INFORMATION
  Report Type: Spontaneous
  Country: US (occurrence: US)
  Receive Date: 20130917
  Receipt Date: 20130923
  Transmission Date: 20140515
  Serious: Yes (Hospitalization)
  Sender: FDA-Public Use
  Company Number: US-SANOFI-AVENTIS-2013SA090798

PATIENT
  Age: 40 Year
  Sex: Female

DRUGS (2)
  1. LEUPRORELIN ACETATE [Suspect]
     Indication: BREAST CANCER FEMALE
     Route: 065
  2. TAMOXIFEN [Concomitant]
     Indication: BREAST CANCER FEMALE

REACTIONS (3)
  - Supraventricular tachyarrhythmia [Recovered/Resolved]
  - Off label use [Unknown]
  - Urticaria [Recovered/Resolved]
